FAERS Safety Report 9135187 (Version 2)
Quarter: 2013Q3

REPORT INFORMATION
  Report Type: Spontaneous
  Country: US (occurrence: US)
  Receive Date: 20130304
  Receipt Date: 20130731
  Transmission Date: 20140515
  Serious: Yes (Hospitalization, Other)
  Sender: FDA-Public Use
  Company Number: US-009507513-1302USA013562

PATIENT
  Sex: Female
  Weight: 86.17 kg

DRUGS (1)
  1. NUVARING [Suspect]
     Indication: CONTRACEPTION
     Dosage: UNK
     Route: 067
     Dates: start: 200505, end: 201103

REACTIONS (6)
  - Cholecystectomy [Unknown]
  - Deep vein thrombosis [Unknown]
  - Gallbladder disorder [Unknown]
  - Ovarian cyst [Unknown]
  - Lung disorder [Unknown]
  - Gastrooesophageal reflux disease [Unknown]
